FAERS Safety Report 15732941 (Version 2)
Quarter: 2019Q1

REPORT INFORMATION
  Report Type: Report from Study
  Country: IN (occurrence: IN)
  Receive Date: 20181218
  Receipt Date: 20190114
  Transmission Date: 20190417
  Serious: Yes (Death)
  Sender: FDA-Public Use
  Company Number: IN-BAXTER-2018BAX030490

PATIENT
  Age: 6 Year
  Sex: Male

DRUGS (1)
  1. PERITONEAL DIALYSIS SOLUTION WITH 1.5% DEXTROSE [Suspect]
     Active Substance: CALCIUM CHLORIDE\DEXTROSE\MAGNESIUM CHLORIDE\SODIUM CHLORIDE\SODIUM LACTATE
     Indication: PERITONEAL DIALYSIS
     Route: 033

REACTIONS (1)
  - Respiratory disorder [Fatal]
